FAERS Safety Report 21380163 (Version 1)
Quarter: 2022Q3

REPORT INFORMATION
  Report Type: Spontaneous
  Country: US (occurrence: None)
  Receive Date: 20220923
  Receipt Date: 20220923
  Transmission Date: 20221026
  Serious: Yes (Hospitalization, Other)
  Sender: FDA-Public Use
  Company Number: None

PATIENT
  Age: 76 Year
  Sex: Male

DRUGS (1)
  1. AMLODIPINE BESYLATE [Suspect]
     Active Substance: AMLODIPINE BESYLATE
     Indication: Hypertension
     Dosage: OTHER QUANTITY : 1/2;?OTHER FREQUENCY : AM;?
     Route: 048
     Dates: start: 20190829

REACTIONS (5)
  - Asthenia [None]
  - Fall [None]
  - Therapy interrupted [None]
  - Hypotension [None]
  - Orthostatic hypotension [None]

NARRATIVE: CASE EVENT DATE: 20220729
